FAERS Safety Report 8798677 (Version 4)
Quarter: 2013Q1

REPORT INFORMATION
  Report Type: Spontaneous
  Country: US (occurrence: US)
  Receive Date: 20120920
  Receipt Date: 20130117
  Transmission Date: 20140127
  Serious: Yes (Hospitalization, Disabling, Other)
  Sender: FDA-Public Use
  Company Number: US-009507513-2012SP022366

PATIENT
  Sex: 0

DRUGS (2)
  1. NUVARING [Suspect]
     Indication: CONTRACEPTION
     Dosage: UNK
     Dates: start: 201001, end: 201005
  2. LEXAPRO [Concomitant]
     Indication: DEPRESSION
     Dosage: 10 MG, UNK

REACTIONS (21)
  - Metrorrhagia [Unknown]
  - Respiratory distress [Unknown]
  - Pulmonary embolism [Recovering/Resolving]
  - Gastrooesophageal reflux disease [Not Recovered/Not Resolved]
  - Gastritis [Not Recovered/Not Resolved]
  - Insomnia [Not Recovered/Not Resolved]
  - Restlessness [Not Recovered/Not Resolved]
  - Constipation [Not Recovered/Not Resolved]
  - Sinusitis [Unknown]
  - Anxiety [Unknown]
  - Blood triglycerides increased [Unknown]
  - Blood cholesterol increased [Unknown]
  - Local swelling [Recovered/Resolved]
  - Deep vein thrombosis [Unknown]
  - Arthralgia [Not Recovered/Not Resolved]
  - Urinary tract infection [Unknown]
  - Cough [Unknown]
  - Hypertension [Unknown]
  - Asthenia [Unknown]
  - Musculoskeletal pain [Unknown]
  - Palpitations [Unknown]
